FAERS Safety Report 6442687-8 (Version None)
Quarter: 2009Q4

REPORT INFORMATION
  Report Type: 
  Country: None (occurrence: None)
  Receive Date: 20091117
  Receipt Date: 20081114
  Transmission Date: 20100525
  Serious: Yes (Death, Hospitalization)
  Sender: FDA-Public Use
  Company Number: DE-ROCHE-587189

PATIENT
  Sex: Male
  Weight: 66 kg

DRUGS (6)
  1. METHOXY POLYETHYLENE GLYCOL-EPOETIN BETA [Suspect]
     Dosage: GIVEN ONCE EVERY FOUR WEEKS.
     Route: 058
     Dates: start: 20080704, end: 20080830
  2. ASPIRIN [Concomitant]
     Dosage: GIVEN IN THE MORNING.
     Route: 048
  3. ISCOVER [Concomitant]
     Dosage: GIVEN IN THE MORNING. DRUG NAME REPORTED AS ISCOVER 75.
     Route: 048
  4. PLASTULEN N [Concomitant]
     Dosage: GIVEN AT NOON.
     Route: 048
  5. OMEP [Concomitant]
     Dosage: GIVEN IN THE MORNING. DRUG NAME REPORTED AS OMEP 20.
     Route: 048
  6. ANTICOAGULANTS NOS [Concomitant]
     Indication: DRUG USE FOR UNKNOWN INDICATION

REACTIONS (3)
  - CIRCULATORY COLLAPSE [None]
  - HAEMATURIA [None]
  - RECTAL HAEMORRHAGE [None]
